FAERS Safety Report 4407932-9 (Version None)
Quarter: 2004Q3

REPORT INFORMATION
  Report Type: 
  Country: None (occurrence: None)
  Receive Date: 20040721
  Receipt Date: 20040610
  Transmission Date: 20050211
  Serious: Yes (Other)
  Sender: FDA-Public Use
  Company Number: WAES 0406ESP00034

PATIENT
  Age: 54 Year
  Sex: Female

DRUGS (1)
  1. INDOCIN [Suspect]

REACTIONS (4)
  - ALANINE AMINOTRANSFERASE INCREASED [None]
  - BLOOD ALKALINE PHOSPHATASE INCREASED [None]
  - HEPATIC STEATOSIS [None]
  - LIVER DISORDER [None]
